FAERS Safety Report 7331503-8 (Version None)
Quarter: 2011Q1

REPORT INFORMATION
  Report Type: 
  Country: None (occurrence: None)
  Receive Date: 20110304
  Receipt Date: 20110223
  Transmission Date: 20110831
  Serious: Yes (Death)
  Sender: FDA-Public Use
  Company Number: US-PFIZER INC-2008153768

PATIENT
  Age: 46 Year
  Sex: Female

DRUGS (6)
  1. SERTRALINE HYDROCHLORIDE [Suspect]
  2. PREGABALIN [Suspect]
  3. TRAMADOL [Suspect]
  4. IMIPRAMINE [Suspect]
  5. CYCLOBENZAPRINE [Suspect]
  6. PROMETHAZINE HCL [Suspect]
     Dosage: UNK
     Route: 048

REACTIONS (3)
  - CARDIAC ARREST [None]
  - RESPIRATORY ARREST [None]
  - COMPLETED SUICIDE [None]
